FAERS Safety Report 11374750 (Version 2)
Quarter: 2015Q3

REPORT INFORMATION
  Report Type: Report from Study
  Country: US (occurrence: US)
  Receive Date: 20150813
  Receipt Date: 20150818
  Transmission Date: 20151125
  Serious: Yes (Other)
  Sender: FDA-Public Use
  Company Number: US-ASTRAZENECA-2015SE76979

PATIENT
  Age: 51 Year
  Sex: Male
  Weight: 86.2 kg

DRUGS (2)
  1. FARXIGA [Suspect]
     Active Substance: DAPAGLIFLOZIN PROPANEDIOL
     Indication: DIABETES MELLITUS
     Route: 048
     Dates: start: 20140605, end: 20141001
  2. FARXIGA [Suspect]
     Active Substance: DAPAGLIFLOZIN PROPANEDIOL
     Indication: DIABETES MELLITUS
     Route: 048

REACTIONS (6)
  - Dizziness postural [Unknown]
  - Heart rate increased [Recovered/Resolved]
  - Rhinorrhoea [Unknown]
  - Malaise [Unknown]
  - Drug withdrawal syndrome [Recovered/Resolved]
  - Weight decreased [Unknown]

NARRATIVE: CASE EVENT DATE: 20140607
